FAERS Safety Report 19817947 (Version 1)
Quarter: 2021Q3

REPORT INFORMATION
  Report Type: Spontaneous
  Country: CN (occurrence: CN)
  Receive Date: 20210910
  Receipt Date: 20210910
  Transmission Date: 20211014
  Serious: Yes (Other)
  Sender: FDA-Public Use
  Company Number: CN-BAXTER-2021BAX028069

PATIENT
  Age: 80 Year
  Sex: Female
  Weight: 43 kg

DRUGS (4)
  1. EPIRUBICIN HYDROCHLORIDE. [Suspect]
     Active Substance: EPIRUBICIN HYDROCHLORIDE
     Indication: OESOPHAGEAL CARCINOMA
     Dosage: EPIRUBICIN HYDROCHLORIDE 40 MG + NS 250 ML
     Route: 041
     Dates: start: 20210711, end: 20210711
  2. 0.9% SODIUM CHLORIDE INJECTION [Suspect]
     Active Substance: SODIUM CHLORIDE
     Indication: MEDICATION DILUTION
     Dosage: NS 100 ML + CYCLOPHOSPHAMIDE FOR INJECTION 0.5 G
     Route: 041
     Dates: start: 20210711, end: 20210711
  3. 0.9% SODIUM CHLORIDE INJECTION [Suspect]
     Active Substance: SODIUM CHLORIDE
     Dosage: NS 250 ML + EPIRUBICIN HYDROCHLORIDE 40 MG
     Route: 041
     Dates: start: 20210711, end: 20210711
  4. ENDOXAN [Suspect]
     Active Substance: CYCLOPHOSPHAMIDE
     Indication: OESOPHAGEAL CARCINOMA
     Dosage: CYCLOPHOSPHAMIDE FOR INJECTION 0.5 G + NS 100 ML
     Route: 041
     Dates: start: 20210711, end: 20210711

REACTIONS (1)
  - Myelosuppression [Recovering/Resolving]

NARRATIVE: CASE EVENT DATE: 20210804
